FAERS Safety Report 8609027-7 (Version None)
Quarter: 2012Q3

REPORT INFORMATION
  Report Type: 
  Country: None (occurrence: None)
  Receive Date: 20120821
  Receipt Date: 20120816
  Transmission Date: 20120928
  Serious: Yes (Other)
  Sender: FDA-Public Use
  Company Number: JP-GLAXOSMITHKLINE-B0823775A

PATIENT

DRUGS (3)
  1. FOLIC ACID [Concomitant]
     Dosage: 5MG PER DAY
     Route: 064
  2. LAMICTAL [Suspect]
     Indication: EPILEPSY
     Dosage: 60MG TWICE PER DAY
     Route: 064
     Dates: start: 20090629
  3. MAGMITT [Concomitant]
     Dosage: 300MG PER DAY
     Route: 064

REACTIONS (2)
  - CONGENITAL NAIL DISORDER [None]
  - FOETAL EXPOSURE DURING PREGNANCY [None]
